FAERS Safety Report 9219293 (Version 2)
Quarter: 2013Q2

REPORT INFORMATION
  Report Type: Spontaneous
  Country: BE (occurrence: BE)
  Receive Date: 20130409
  Receipt Date: 20130529
  Transmission Date: 20140414
  Serious: Yes (Hospitalization)
  Sender: FDA-Public Use
  Company Number: BE-PFIZER INC-2013110664

PATIENT
  Age: 18 Year
  Sex: Female

DRUGS (1)
  1. SERLAIN [Suspect]
     Indication: DEPRESSION
     Dosage: 50 MG/DAY
     Route: 048
     Dates: start: 20130320, end: 20130320

REACTIONS (7)
  - Epilepsy [Recovering/Resolving]
  - Hyperventilation [Unknown]
  - Vomiting [Unknown]
  - Personality disorder [Unknown]
  - Anxiety [Unknown]
  - Red blood cell sedimentation rate increased [Unknown]
  - White blood cell count increased [Unknown]
